FAERS Safety Report 20704161 (Version 3)
Quarter: 2022Q3

REPORT INFORMATION
  Report Type: Report from Study
  Country: US (occurrence: None)
  Receive Date: 20220413
  Receipt Date: 20220901
  Transmission Date: 20221027
  Serious: Yes (Hospitalization)
  Sender: FDA-Public Use
  Company Number: US-Merck Healthcare KGaA-9312181

PATIENT
  Sex: Female

DRUGS (1)
  1. REBIF [Suspect]
     Active Substance: INTERFERON BETA-1A
     Indication: Multiple sclerosis
     Route: 058
     Dates: start: 20170727

REACTIONS (6)
  - Functional gastrointestinal disorder [Recovering/Resolving]
  - Pneumonia [Recovering/Resolving]
  - Vomiting [Recovering/Resolving]
  - Stool analysis abnormal [Recovering/Resolving]
  - Sensitive skin [Unknown]
  - Lack of injection site rotation [Unknown]
